FAERS Safety Report 24704476 (Version 1)
Quarter: 2024Q4

REPORT INFORMATION
  Report Type: Other
  Country: FR (occurrence: FR)
  Receive Date: 20241206
  Receipt Date: 20241206
  Transmission Date: 20250114
  Serious: Yes (Life-Threatening, Hospitalization, Other)
  Sender: ZYDUS PHARM
  Company Number: None

PATIENT

DRUGS (20)
  1. ACETAMINOPHEN [Suspect]
     Active Substance: ACETAMINOPHEN
     Indication: Product used for unknown indication
     Dosage: 2 CPS, 3 TIMES A DAY, IF NECESSARY
     Route: 065
  2. FENOFIBRATE [Suspect]
     Active Substance: FENOFIBRATE
     Indication: Product used for unknown indication
     Dosage: UNK, QD, 1 TABLET IN THE MORNING
     Route: 065
  3. ARTISIAL [Suspect]
     Active Substance: CALCIUM CHLORIDE\MAGNESIUM CHLORIDE\POTASSIUM CHLORIDE\POTASSIUM PHOSPHATE, DIBASIC\POTASSIUM PHOSPH
     Indication: Product used for unknown indication
     Dosage: SPRAY 2 SPRAYS 3X/DAY
     Route: 065
  4. POLYETHYLENE GLYCOL 4000 [Suspect]
     Active Substance: POLYETHYLENE GLYCOL 4000
     Indication: Product used for unknown indication
     Dosage: UNK, BID, 2 SACHETS MORNING AND MIDDAY
     Route: 065
  5. GLUCOPHAGE [Suspect]
     Active Substance: METFORMIN HYDROCHLORIDE
     Indication: Product used for unknown indication
     Dosage: 2000 MILLIGRAM, QD
     Route: 065
  6. HALOPERIDOL [Suspect]
     Active Substance: HALOPERIDOL
     Indication: Bipolar disorder
     Dosage: 10 DROP, QD
     Route: 048
     Dates: start: 20240827, end: 20240827
  7. IMOVANE [Suspect]
     Active Substance: ZOPICLONE
     Indication: Product used for unknown indication
     Dosage: 7.5 MILLIGRAM,QD  7.5 MG 1 CAP AT BEDTIME
     Route: 065
  8. LOXAPINE SUCCINATE [Suspect]
     Active Substance: LOXAPINE SUCCINATE
     Indication: Psychiatric decompensation
     Dosage: 25 MG MORNING, NOON AND 100 MG IN THE EVENING, THEN 50 MG MORNING, NOON AND 100 MG IN THE EVENING SI
     Route: 048
     Dates: start: 20240624, end: 20240827
  9. QUETIAPINE FUMARATE [Suspect]
     Active Substance: QUETIAPINE FUMARATE
     Indication: Bipolar disorder
     Dosage: 800 MILLIGRAM, QD, 400 MG 2 CPS AT BEDTIME
     Route: 048
     Dates: end: 20240828
  10. SERETIDE [Suspect]
     Active Substance: FLUTICASONE PROPIONATE\SALMETEROL XINAFOATE
     Indication: Product used for unknown indication
     Dosage: BID, 250/25 ?G/DOSE 1 PUFF MORNING AND EVENING
     Route: 065
  11. ANETHOLTRITHION [Suspect]
     Active Substance: ANETHOLTRITHION
     Indication: Product used for unknown indication
     Dosage: UNK, BID, 1 TABLET MORNING, NOON AND EVENING
     Route: 048
  12. TERALITHE [Suspect]
     Active Substance: LITHIUM CARBONATE
     Indication: Bipolar disorder
     Dosage: 800 MILLIGRAM, 400 MG 2 CPS AT NIGHT
     Route: 048
     Dates: start: 2018
  13. TERALITHE [Suspect]
     Active Substance: LITHIUM CARBONATE
     Dosage: 800 MILLIGRAM, QD
     Route: 048
     Dates: start: 2024
  14. TERALITHE [Suspect]
     Active Substance: LITHIUM CARBONATE
     Dosage: 600 MILLIGRAM, QD
     Route: 048
     Dates: start: 20240616
  15. TERALITHE [Suspect]
     Active Substance: LITHIUM CARBONATE
     Dosage: 800 MILLIGRAM, THERAPEUTIC WINDOW AND GRADUAL RESUMPTION
     Route: 048
     Dates: start: 20240625
  16. TERALITHE [Suspect]
     Active Substance: LITHIUM CARBONATE
     Dosage: 200 MILLIGRAM, QD
     Route: 048
     Dates: start: 20240905
  17. TERALITHE [Suspect]
     Active Substance: LITHIUM CARBONATE
     Dosage: 400 MILLIGRAM, QD
     Route: 048
     Dates: start: 20240910
  18. POLYETHYLENE GLYCOL 3350 [Suspect]
     Active Substance: POLYETHYLENE GLYCOL 3350
     Indication: Product used for unknown indication
     Dosage: UNK, BID, 2 SACHETS MORNING AND MIDDAY
     Route: 065
  19. VALIUM [Suspect]
     Active Substance: DIAZEPAM
     Indication: Product used for unknown indication
     Dosage: 5 MILLIGRAM, QD, 5 MG 1 CAP AT BEDTIME (SINCE 06/2024)
     Route: 065
     Dates: start: 202406
  20. ALBUTEROL SULFATE [Suspect]
     Active Substance: ALBUTEROL SULFATE
     Indication: Product used for unknown indication
     Dosage: TID,2 PUFFS 3 TIMES A DAY
     Route: 065

REACTIONS (6)
  - Neuroleptic malignant syndrome [Recovered/Resolved]
  - Faecaloma [Recovered/Resolved]
  - Impaired gastric emptying [Unknown]
  - Extrapyramidal disorder [Recovered/Resolved]
  - Fall [Recovered/Resolved]
  - Pulmonary embolism [Recovered/Resolved]

NARRATIVE: CASE EVENT DATE: 20200101
